FAERS Safety Report 25192590 (Version 2)
Quarter: 2025Q2

REPORT INFORMATION
  Report Type: Spontaneous
  Country: NL (occurrence: NL)
  Receive Date: 20250414
  Receipt Date: 20250506
  Transmission Date: 20250717
  Serious: No
  Sender: PFIZER
  Company Number: NL-PFIZER INC-202500048562

PATIENT
  Sex: Female

DRUGS (1)
  1. GENOTROPIN [Suspect]
     Active Substance: SOMATROPIN
     Indication: Growth disorder
     Dosage: UNK UNK, DAILY

REACTIONS (4)
  - Incorrect dose administered by device [Unknown]
  - Device breakage [Unknown]
  - Device leakage [Unknown]
  - Device material issue [Unknown]
